FAERS Safety Report 13792635 (Version 1)
Quarter: 2017Q3

REPORT INFORMATION
  Report Type: Spontaneous
  Country: US (occurrence: US)
  Receive Date: 20170726
  Receipt Date: 20170726
  Transmission Date: 20171127
  Serious: Yes (Other)
  Sender: FDA-Public Use
  Company Number: US-PFIZER INC-2017316896

PATIENT
  Age: 49 Year
  Sex: Female

DRUGS (4)
  1. EPINEPHRINE. [Suspect]
     Active Substance: EPINEPHRINE
     Indication: CARDIAC OUTPUT DECREASED
  2. NEOSYNEPHRINE [Suspect]
     Active Substance: PHENYLEPHRINE HYDROCHLORIDE
     Indication: CARDIAC OUTPUT DECREASED
  3. EPINEPHRINE. [Suspect]
     Active Substance: EPINEPHRINE
     Indication: MEAN ARTERIAL PRESSURE DECREASED
     Dosage: UNK
  4. NEOSYNEPHRINE [Suspect]
     Active Substance: PHENYLEPHRINE HYDROCHLORIDE
     Indication: MEAN ARTERIAL PRESSURE DECREASED
     Dosage: UNK

REACTIONS (1)
  - Complications of transplanted liver [Unknown]
